FAERS Safety Report 16028616 (Version 3)
Quarter: 2019Q1

REPORT INFORMATION
  Report Type: Report from Study
  Country: ES (occurrence: ES)
  Receive Date: 20190304
  Receipt Date: 20190318
  Transmission Date: 20190418
  Serious: No
  Sender: FDA-Public Use
  Company Number: ES-ROCHE-2274927

PATIENT
  Age: 78 Year
  Sex: Male

DRUGS (9)
  1. ATEZOLIZUMAB. [Suspect]
     Active Substance: ATEZOLIZUMAB
     Indication: METASTATIC MALIGNANT MELANOMA
     Dosage: ON 04/FEB/2019, HE RECEIVED THE MOST RECENT DOSE OF ATEZOLIZUMAB PRIOR TO AE/SAE ONSET
     Route: 042
     Dates: start: 20190122
  2. RANITIDINE. [Concomitant]
     Active Substance: RANITIDINE
     Route: 048
  3. FUROSEMIDE. [Concomitant]
     Active Substance: FUROSEMIDE
     Route: 048
  4. VEMURAFENIB. [Suspect]
     Active Substance: VEMURAFENIB
     Indication: METASTATIC MALIGNANT MELANOMA
     Dosage: (FOUR 240 MG TABLETS)?ON 17/FEB/2019, HE RECEIVED THE MOST RECENT DOSE OF VEMURAFENIB 60 MG PRIOR TO
     Route: 048
     Dates: start: 20181213
  5. ENALAPRIL [Concomitant]
     Active Substance: ENALAPRIL
     Indication: HYPERTENSION
     Route: 048
  6. KEPPRA [Concomitant]
     Active Substance: LEVETIRACETAM
     Route: 048
     Dates: start: 201810
  7. EBASTINE [Concomitant]
     Active Substance: EBASTINE
     Indication: PRURITUS
     Route: 048
     Dates: start: 20190103
  8. COBIMETINIB. [Suspect]
     Active Substance: COBIMETINIB
     Indication: METASTATIC MALIGNANT MELANOMA
     Dosage: THREE TABLETS OF 20 MG EACH?ON 11/FEB/2019, HE RECEIVED THE MOST RECENT DOSE OF COBIMETINB 60 MG PRI
     Route: 048
     Dates: start: 20181213
  9. METFORMIN [Concomitant]
     Active Substance: METFORMIN HYDROCHLORIDE
     Route: 048

REACTIONS (1)
  - Myositis [Recovering/Resolving]

NARRATIVE: CASE EVENT DATE: 20190225
